FAERS Safety Report 24885357 (Version 2)
Quarter: 2025Q1

REPORT INFORMATION
  Report Type: Spontaneous
  Country: SK (occurrence: SK)
  Receive Date: 20250124
  Receipt Date: 20250131
  Transmission Date: 20250409
  Serious: Yes (Other)
  Sender: NOVARTIS
  Company Number: SK-SANDOZ-SDZ2025SK003136

PATIENT
  Age: 53 Year
  Sex: Female

DRUGS (4)
  1. LETROZOLE [Suspect]
     Active Substance: LETROZOLE
     Indication: Product used for unknown indication
     Route: 065
     Dates: start: 201904
  2. KISQALI [Suspect]
     Active Substance: RIBOCICLIB
     Indication: Product used for unknown indication
     Dosage: 600 MG, QD FOR 21 CONSECUTIVE DAYS FOLLOWED  BY A 7 DAY BREAK A?ER APPROVAL BY THE HEALTH INSURANCE
     Route: 065
     Dates: start: 201906
  3. KISQALI [Suspect]
     Active Substance: RIBOCICLIB
     Dosage: 400 MG, QD FOR 21 CONSECUTIVE DAYS AND THEN 7 DAYS BREAK
     Route: 065
  4. DENOSUMAB [Suspect]
     Active Substance: DENOSUMAB
     Indication: Product used for unknown indication
     Route: 065

REACTIONS (5)
  - Neutropenia [Unknown]
  - Disease progression [Unknown]
  - Fatigue [Unknown]
  - Pruritus [Unknown]
  - Dry skin [Unknown]
